FAERS Safety Report 5234813-3 (Version None)
Quarter: 2007Q1

REPORT INFORMATION
  Report Type: 
  Country: None (occurrence: None)
  Receive Date: 20070209
  Receipt Date: 20070201
  Transmission Date: 20070707
  Serious: Yes (Hospitalization)
  Sender: FDA-Public Use
  Company Number: AT-ABBOTT-07P-009-0358217-00

PATIENT
  Age: 47 Year
  Sex: Female

DRUGS (18)
  1. DEPAKENE [Suspect]
     Indication: DRUG USE FOR UNKNOWN INDICATION
     Route: 048
     Dates: start: 20061109, end: 20061112
  2. DEPAKENE [Suspect]
     Route: 048
     Dates: start: 20060801
  3. DEPAKENE [Suspect]
     Route: 048
     Dates: start: 20060914, end: 20060914
  4. DEPAKENE [Suspect]
     Route: 048
     Dates: start: 20060915, end: 20060915
  5. DEPAKENE [Suspect]
     Route: 048
     Dates: start: 20060916, end: 20060916
  6. DEPAKENE [Suspect]
     Route: 048
     Dates: start: 20060917, end: 20060921
  7. DEPAKENE [Suspect]
     Route: 048
     Dates: start: 20060922, end: 20061015
  8. DEPAKENE [Suspect]
     Route: 048
     Dates: start: 20061016, end: 20061016
  9. DEPAKENE [Suspect]
     Route: 048
     Dates: start: 20061017, end: 20061108
  10. DEPAKENE [Suspect]
     Route: 048
     Dates: start: 20061113, end: 20061113
  11. DEPAKENE [Suspect]
     Route: 048
     Dates: start: 20061109, end: 20061112
  12. QUETIAPINE FUMARATE [Suspect]
     Indication: DRUG USE FOR UNKNOWN INDICATION
     Route: 048
     Dates: start: 20061109, end: 20061112
  13. BECLOMETHASONE DIPROPIONATE [Concomitant]
     Indication: DRUG USE FOR UNKNOWN INDICATION
     Route: 055
  14. DUOVENT [Concomitant]
     Indication: DRUG USE FOR UNKNOWN INDICATION
     Route: 055
  15. OXYBUTYNIN [Concomitant]
     Indication: DRUG USE FOR UNKNOWN INDICATION
     Route: 048
     Dates: end: 20061112
  16. HALOPERIDOL DECANOATE [Concomitant]
     Indication: DRUG USE FOR UNKNOWN INDICATION
     Route: 065
     Dates: end: 20061025
  17. LEVOMEPROMAZINE [Concomitant]
     Indication: DRUG USE FOR UNKNOWN INDICATION
     Route: 048
     Dates: start: 20060922, end: 20061112
  18. ASPIRIN [Concomitant]
     Indication: DRUG USE FOR UNKNOWN INDICATION
     Route: 048
     Dates: end: 20061112

REACTIONS (4)
  - FAECALOMA [None]
  - FLATULENCE [None]
  - ILEUS [None]
  - PANCREATITIS ACUTE [None]
